FAERS Safety Report 14456018 (Version 1)
Quarter: 2018Q1

REPORT INFORMATION
  Report Type: Spontaneous
  Country: ES (occurrence: ES)
  Receive Date: 20180130
  Receipt Date: 20180130
  Transmission Date: 20180509
  Serious: Yes (Other)
  Sender: FDA-Public Use
  Company Number: ES-009507513-1712ESP008005

PATIENT
  Age: 43 Year
  Sex: Male

DRUGS (1)
  1. ORVATEZ 10 MG/20 MG COMPRIMIDOS RECUBIERTOS CON PELICULA [Suspect]
     Active Substance: ATORVASTATIN CALCIUM\EZETIMIBE
     Indication: TYPE IIA HYPERLIPIDAEMIA
     Dosage: 10/20 MG (1 DOSAGE FORMS, 1 IN 1 D)
     Route: 048
     Dates: start: 201412

REACTIONS (10)
  - Dizziness [Recovered/Resolved]
  - Primary headache associated with sexual activity [Recovered/Resolved]
  - Somnolence [Recovered/Resolved]
  - Tendon pain [Recovered/Resolved]
  - Hypoaesthesia [Recovering/Resolving]
  - Myalgia [Recovering/Resolving]
  - Mental impairment [Recovered/Resolved]
  - Speech disorder [Recovered/Resolved]
  - Burning sensation [Recovering/Resolving]
  - Headache [Recovered/Resolved]

NARRATIVE: CASE EVENT DATE: 201412
